FAERS Safety Report 8011658-2 (Version None)
Quarter: 2011Q4

REPORT INFORMATION
  Report Type: 
  Country: None (occurrence: None)
  Receive Date: 20111228
  Receipt Date: 20111222
  Transmission Date: 20120403
  Serious: Yes (Hospitalization)
  Sender: FDA-Public Use
  Company Number: GB-ELI_LILLY_AND_COMPANY-GB201112006670

PATIENT
  Sex: Male

DRUGS (10)
  1. SUCCINATE SODIUM [Concomitant]
     Dosage: UNK
  2. OMEPRAZOLE [Concomitant]
     Dosage: UNK
  3. AMIODARONE [Concomitant]
     Dosage: UNK
  4. SIMVASTATIN [Concomitant]
     Dosage: UNK
  5. HUMALOG [Suspect]
  6. AMADOL                             /00599201/ [Concomitant]
     Dosage: UNK
  7. ASPIRIN [Concomitant]
     Dosage: UNK
  8. PREDNISOLONE [Concomitant]
     Dosage: UNK
  9. DIHYDROCODEINE BITARTRATE INJ [Concomitant]
     Dosage: UNK
  10. ACETAMINOPHEN [Concomitant]
     Dosage: UNK

REACTIONS (1)
  - VASCULAR GRAFT [None]
